FAERS Safety Report 9206305 (Version 1)
Quarter: 2013Q2

REPORT INFORMATION
  Report Type: Spontaneous
  Country: US (occurrence: US)
  Receive Date: 20130403
  Receipt Date: 20130403
  Transmission Date: 20140414
  Serious: Yes (Death, Hospitalization)
  Sender: FDA-Public Use
  Company Number: PHEH2013US007479

PATIENT
  Age: 70 Year
  Sex: Male

DRUGS (1)
  1. AFINITOR [Suspect]
     Indication: GASTRIC CANCER
     Dosage: 2.5, QD
     Route: 048

REACTIONS (4)
  - Death [Fatal]
  - Cardiac failure congestive [Unknown]
  - Chest pain [Unknown]
  - Metastasis [Unknown]
